FAERS Safety Report 8653257 (Version 2)
Quarter: 2012Q4

REPORT INFORMATION
  Report Type: Report from Study
  Country: JP (occurrence: JP)
  Receive Date: 20120706
  Receipt Date: 20120921
  Transmission Date: 20130627
  Serious: Yes (Hospitalization, Other)
  Sender: FDA-Public Use
  Company Number: JP-ASTELLAS-2012US005991

PATIENT
  Age: 64 Year
  Sex: Male

DRUGS (22)
  1. ERLOTINIB TABLET [Suspect]
     Indication: PANCREATIC CARCINOMA
     Dosage: 100 mg, UID/QD
     Route: 048
     Dates: start: 20110826, end: 20110914
  2. ERLOTINIB TABLET [Suspect]
     Dosage: 50 mg, UID/QD
     Route: 048
     Dates: start: 20111024, end: 20111220
  3. GEMCITABINE HCL [Suspect]
     Indication: PANCREATIC CARCINOMA
     Dosage: 1000 mg/m2, Weekly
     Route: 041
     Dates: start: 20110826, end: 20110902
  4. GEMCITABINE HCL [Suspect]
     Dosage: 1000 mg/m2, Weekly
     Route: 041
     Dates: start: 20110929, end: 20111006
  5. GEMCITABINE HCL [Suspect]
     Dosage: 1000 mg/m2, Weekly
     Route: 041
     Dates: start: 20111024, end: 20111107
  6. GEMCITABINE HCL [Suspect]
     Dosage: 1000 mg/m2, 2 weeks administration and 1 week rest
     Route: 041
     Dates: start: 20111118, end: 20111216
  7. MAGMITT [Concomitant]
     Indication: PRODUCT USED FOR UNKNOWN INDICATION
     Dosage: 990 mg, UID/QD
     Route: 048
  8. MIYA-BM [Concomitant]
     Indication: PRODUCT USED FOR UNKNOWN INDICATION
     Dosage: 1000 mg, UID/QD
     Route: 048
     Dates: start: 20110908
  9. MUCOSTA [Concomitant]
     Indication: PRODUCT USED FOR UNKNOWN INDICATION
     Dosage: 300 mg, UID/QD
     Route: 048
     Dates: start: 20111222
  10. DEXART [Concomitant]
     Indication: PRODUCT USED FOR UNKNOWN INDICATION
     Dosage: 6.6 mg, UID/QD
     Route: 041
     Dates: start: 20110826, end: 20110826
  11. DEXART [Concomitant]
     Dosage: 6.6 mg, UID/QD
     Route: 041
     Dates: start: 20110902, end: 20110902
  12. DEXART [Concomitant]
     Dosage: 6.6 mg, UID/QD
     Route: 041
     Dates: start: 20110929, end: 20110929
  13. DEXART [Concomitant]
     Dosage: 6.6 mg, UID/QD
     Route: 041
     Dates: start: 20111006, end: 20111006
  14. DEXART [Concomitant]
     Dosage: 6.6 mg, UID/QD
     Route: 041
     Dates: start: 20111024, end: 20111024
  15. DEXART [Concomitant]
     Dosage: 6.6 mg, UID/QD
     Route: 041
     Dates: start: 20111031, end: 20111031
  16. DEXART [Concomitant]
     Dosage: 6.6 mg, UID/QD
     Route: 041
     Dates: start: 20111107, end: 20111107
  17. DEXART [Concomitant]
     Dosage: 6.6 mg, UID/QD
     Route: 041
     Dates: start: 20111118, end: 20111118
  18. DEXART [Concomitant]
     Dosage: 6.6 mg, UID/QD
     Route: 041
     Dates: start: 20111125, end: 20111125
  19. DEXART [Concomitant]
     Dosage: 6.6 mg, UID/QD
     Route: 041
     Dates: start: 20111208, end: 20111208
  20. DEXART [Concomitant]
     Dosage: 6.6 mg, UID/QD
     Route: 041
     Dates: start: 20111216, end: 20111216
  21. KYTRIL [Concomitant]
     Indication: PRODUCT USED FOR UNKNOWN INDICATION
     Dosage: 3 mg, UID/QD
     Route: 041
     Dates: start: 20111208, end: 20111208
  22. KYTRIL [Concomitant]
     Dosage: 3 mg, UID/QD
     Route: 041
     Dates: start: 20111216, end: 20111216

REACTIONS (20)
  - C-reactive protein increased [Recovered/Resolved]
  - Blood glucose increased [Recovered/Resolved]
  - Pyrexia [Recovered/Resolved]
  - Malignant neoplasm progression [Unknown]
  - Blood bilirubin increased [Recovered/Resolved]
  - Diarrhoea [Recovered/Resolved]
  - Hepatic function abnormal [Recovered/Resolved]
  - Rash [Recovered/Resolved]
  - Abdominal discomfort [Recovered/Resolved]
  - Stomatitis [Recovered/Resolved]
  - Pyrexia [Recovered/Resolved]
  - C-reactive protein increased [Not Recovered/Not Resolved]
  - Amylase increased [Recovered/Resolved]
  - Cellulitis [Unknown]
  - Neck pain [Not Recovered/Not Resolved]
  - Musculoskeletal pain [Not Recovered/Not Resolved]
  - Onychomycosis [Unknown]
  - Pyrexia [Recovered/Resolved]
  - Constipation [Recovered/Resolved]
  - Oedema peripheral [Unknown]
